FAERS Safety Report 7724573-6 (Version None)
Quarter: 2011Q3

REPORT INFORMATION
  Report Type: 
  Country: None (occurrence: None)
  Receive Date: 20110829
  Receipt Date: 20110822
  Transmission Date: 20111222
  Serious: Yes (Death)
  Sender: FDA-Public Use
  Company Number: 2011001316

PATIENT
  Age: 68 Year
  Sex: Female

DRUGS (2)
  1. TARCEVA [Suspect]
     Dosage: 100 MG, UID/QD, ORAL
     Route: 048
  2. TARCEVA [Suspect]
     Indication: PANCREATIC CARCINOMA
     Dosage: 100 MG, UID/QD, ORAL
     Route: 048
     Dates: start: 20100219

REACTIONS (4)
  - BLOOD PRESSURE FLUCTUATION [None]
  - NEOPLASM PROGRESSION [None]
  - BILE DUCT CANCER [None]
  - DIZZINESS [None]
